FAERS Safety Report 4638817-0 (Version None)
Quarter: 2005Q2

REPORT INFORMATION
  Report Type: 
  Country: None (occurrence: None)
  Receive Date: 20050418
  Receipt Date: 20050418
  Transmission Date: 20051028
  Serious: No
  Sender: FDA-Public Use
  Company Number: None

PATIENT
  Age: 16 Year
  Sex: Male
  Weight: 81.6475 kg

DRUGS (3)
  1. SULINDAC [Suspect]
     Indication: ARTHRALGIA
     Dosage: 200MG  BID ORAL
     Route: 048
     Dates: start: 20050401, end: 20050407
  2. SULINDAC [Suspect]
     Indication: ARTHRALGIA
     Dosage: 200MG  BID ORAL
     Route: 048
     Dates: start: 20050411, end: 20050411
  3. SULINDAC [Suspect]

REACTIONS (13)
  - BURNING SENSATION [None]
  - DRUG EFFECT DECREASED [None]
  - ERYTHEMA [None]
  - FATIGUE [None]
  - FEELING ABNORMAL [None]
  - HYPERSENSITIVITY [None]
  - MUSCLE SPASMS [None]
  - PAIN IN EXTREMITY [None]
  - PRURITUS GENERALISED [None]
  - PYREXIA [None]
  - RESTLESSNESS [None]
  - THERAPEUTIC PRODUCT INEFFECTIVE [None]
  - VOMITING [None]
